FAERS Safety Report 5875208-9 (Version None)
Quarter: 2008Q3

REPORT INFORMATION
  Report Type: 
  Country: None (occurrence: None)
  Receive Date: 20080909
  Receipt Date: 20080902
  Transmission Date: 20090109
  Serious: Yes (Hospitalization, Other)
  Sender: FDA-Public Use
  Company Number: US-CELGENEUS-163-21880-08061443

PATIENT
  Sex: Female

DRUGS (2)
  1. REVLIMID [Suspect]
     Indication: CHRONIC LYMPHOCYTIC LEUKAEMIA
     Route: 048
     Dates: start: 20080313, end: 20080620
  2. REVLIMID [Suspect]
     Route: 048
     Dates: start: 20080714

REACTIONS (3)
  - ATELECTASIS [None]
  - DYSPNOEA [None]
  - PLEURAL EFFUSION [None]
